FAERS Safety Report 4959816-5 (Version None)
Quarter: 2006Q1

REPORT INFORMATION
  Report Type: 
  Country: None (occurrence: None)
  Receive Date: 20060324
  Receipt Date: 20060320
  Transmission Date: 20060701
  Serious: Yes (Hospitalization, Other)
  Sender: FDA-Public Use
  Company Number: DEWYE483420MAR06

PATIENT
  Age: 80 Year
  Sex: Female

DRUGS (9)
  1. VENLAFAXINE HCL [Suspect]
     Indication: DEPRESSION
     Dosage: 75 MG PER DAY ORAL; SEE IMAGE
     Route: 048
     Dates: start: 20050408, end: 20050425
  2. VENLAFAXINE HCL [Suspect]
     Indication: DEPRESSION
     Dosage: 75 MG PER DAY ORAL; SEE IMAGE
     Route: 048
     Dates: start: 20050426, end: 20050517
  3. VENLAFAXINE HCL [Suspect]
     Indication: DEPRESSION
     Dosage: 75 MG PER DAY ORAL; SEE IMAGE
     Route: 048
     Dates: start: 20050518, end: 20050523
  4. VENLAFAXINE HCL [Suspect]
     Indication: DEPRESSION
     Dosage: 75 MG PER DAY ORAL; SEE IMAGE
     Route: 048
     Dates: start: 20050524, end: 20050605
  5. SOLIAN (AMISULPRIDE) [Suspect]
     Dosage: 300 MG PER DAY ORAL; SEE IMAGE
     Route: 048
     Dates: end: 20050218
  6. SOLIAN (AMISULPRIDE) [Suspect]
     Dosage: 300 MG PER DAY ORAL; SEE IMAGE
     Route: 048
     Dates: start: 20050219, end: 20050315
  7. SOLIAN (AMISULPRIDE) [Suspect]
     Dosage: 300 MG PER DAY ORAL; SEE IMAGE
     Route: 048
     Dates: start: 20050316, end: 20050509
  8. SOLIAN (AMISULPRIDE) [Suspect]
     Dosage: 300 MG PER DAY ORAL; SEE IMAGE
     Route: 048
     Dates: start: 20050510, end: 20050524
  9. MIRTAZAPINE [Concomitant]

REACTIONS (2)
  - AKATHISIA [None]
  - PLEUROTHOTONUS [None]
